FAERS Safety Report 8426239-6 (Version None)
Quarter: 2012Q2

REPORT INFORMATION
  Report Type: 
  Country: None (occurrence: None)
  Receive Date: 20120611
  Receipt Date: 20120529
  Transmission Date: 20120825
  Serious: Yes (Death)
  Sender: FDA-Public Use
  Company Number: US-SANOFI-AVENTIS-2012SA037924

PATIENT
  Age: 91 Year
  Sex: Female
  Weight: 44 kg

DRUGS (5)
  1. SYNTHROID [Concomitant]
  2. PLAVIX [Suspect]
     Route: 048
     Dates: start: 20080201
  3. BENICAR [Concomitant]
  4. ATORVASTATIN CALCIUM [Concomitant]
  5. TENORETIC 100 [Concomitant]

REACTIONS (1)
  - DEATH [None]
